FAERS Safety Report 17651581 (Version 1)
Quarter: 2020Q2

REPORT INFORMATION
  Report Type: Spontaneous
  Country: US (occurrence: US)
  Receive Date: 20200409
  Receipt Date: 20200409
  Transmission Date: 20200713
  Serious: Yes (Hospitalization)
  Sender: FDA-Public Use
  Company Number: None

PATIENT
  Age: 82 Year
  Sex: Male
  Weight: 64.82 kg

DRUGS (1)
  1. CIPROFLOXACIN. [Suspect]
     Active Substance: CIPROFLOXACIN
     Indication: DIVERTICULITIS
     Route: 048
     Dates: start: 20180606, end: 20180609

REACTIONS (4)
  - Haemodynamic instability [None]
  - Platelet transfusion [None]
  - Thrombocytopenia [None]
  - Haemoglobin decreased [None]

NARRATIVE: CASE EVENT DATE: 20180609
